FAERS Safety Report 18226242 (Version 1)
Quarter: 2020Q3

REPORT INFORMATION
  Report Type: Spontaneous
  Country: US (occurrence: US)
  Receive Date: 20200902
  Receipt Date: 20200902
  Transmission Date: 20201103
  Serious: No
  Sender: FDA-Public Use
  Company Number: None

PATIENT
  Age: 81 Year
  Sex: Male

DRUGS (1)
  1. EMPAGLIFLOZIN (EMPAGLIFOZIN 25MG TAB) [Suspect]
     Active Substance: EMPAGLIFLOZIN
     Indication: DIABETES MELLITUS
     Dosage: ?          OTHER FREQUENCY:AM;?
     Route: 048
     Dates: start: 20200515, end: 20200618

REACTIONS (2)
  - Acute kidney injury [None]
  - Renal impairment [None]

NARRATIVE: CASE EVENT DATE: 20200618
